FAERS Safety Report 4427697-4 (Version None)
Quarter: 2004Q3

REPORT INFORMATION
  Report Type: 
  Country: None (occurrence: None)
  Receive Date: 20040817
  Receipt Date: 20040524
  Transmission Date: 20050211
  Serious: Yes (Death)
  Sender: FDA-Public Use
  Company Number: JP-ROCHE-368979

PATIENT
  Age: 83 Year
  Sex: Female
  Weight: 35 kg

DRUGS (15)
  1. TAMIFLU [Suspect]
     Route: 048
     Dates: start: 20040127, end: 20040129
  2. MEIACT [Suspect]
     Indication: CYSTITIS
     Route: 048
     Dates: start: 20040122, end: 20040125
  3. CEFMETAZON [Suspect]
     Indication: PNEUMONIA
     Route: 042
     Dates: start: 20040126, end: 20040129
  4. SERENACE [Concomitant]
     Indication: RESTLESSNESS
     Route: 048
     Dates: start: 20031226, end: 20040128
  5. PRONON [Concomitant]
     Indication: ARRHYTHMIA
     Route: 048
     Dates: start: 20031217, end: 20040128
  6. ALDACTONE-A [Concomitant]
     Indication: CARDIAC FAILURE
     Route: 048
     Dates: start: 20031217, end: 20040128
  7. LASIX [Concomitant]
     Indication: CARDIAC FAILURE
     Route: 048
     Dates: start: 20031217, end: 20040128
  8. MYONAL [Concomitant]
     Indication: HEADACHE
     Route: 048
     Dates: start: 20031217, end: 20040128
  9. DEPAS [Concomitant]
     Indication: INSOMNIA
     Route: 048
     Dates: start: 20031217, end: 20040128
  10. AMOBAN [Concomitant]
     Indication: INSOMNIA
     Route: 048
     Dates: start: 20031217, end: 20040128
  11. UNKNOWN MEDICATION [Concomitant]
     Indication: CONSTIPATION
     Dosage: DRUG REPORTED AS MAGLAX
     Route: 048
     Dates: start: 20040109, end: 20040128
  12. PURSENNID [Concomitant]
     Indication: CONSTIPATION
     Route: 048
     Dates: start: 20040124, end: 20040128
  13. HALFDIGOXIN KY [Concomitant]
     Indication: CARDIAC FAILURE
     Route: 048
     Dates: start: 20031217, end: 20040128
  14. GASTER [Concomitant]
     Indication: GASTRIC ULCER
     Route: 048
     Dates: start: 20031216, end: 20040128
  15. MIYA BM [Concomitant]
     Indication: GASTRIC ULCER
     Route: 048
     Dates: start: 20040124, end: 20040127

REACTIONS (4)
  - HEPATIC FAILURE [None]
  - HEPATIC FUNCTION ABNORMAL [None]
  - NECROSIS [None]
  - RESPIRATORY FAILURE [None]
